FAERS Safety Report 18205231 (Version 1)
Quarter: 2020Q3

REPORT INFORMATION
  Report Type: Spontaneous
  Country: PL (occurrence: PL)
  Receive Date: 20200828
  Receipt Date: 20200828
  Transmission Date: 20201103
  Serious: Yes (Other)
  Sender: FDA-Public Use
  Company Number: PL-ROCHE-2665643

PATIENT
  Age: 65 Year
  Sex: Male

DRUGS (1)
  1. CELLCEPT [Suspect]
     Active Substance: MYCOPHENOLATE MOFETIL\MYCOPHENOLATE MOFETIL HYDROCHLORIDE
     Indication: CORNEAL TRANSPLANT
     Route: 065
     Dates: start: 20200709, end: 202008

REACTIONS (10)
  - Influenza [Unknown]
  - Thinking abnormal [Unknown]
  - Arthritis [Unknown]
  - Delirium [Unknown]
  - Rash [Unknown]
  - Ill-defined disorder [Unknown]
  - Pain [Unknown]
  - Insomnia [Unknown]
  - Hypersensitivity [Unknown]
  - Joint swelling [Unknown]
